FAERS Safety Report 4519223-6 (Version None)
Quarter: 2004Q4

REPORT INFORMATION
  Report Type: 
  Country: None (occurrence: None)
  Receive Date: 20041206
  Receipt Date: 20031008
  Transmission Date: 20050328
  Serious: No
  Sender: FDA-Public Use
  Company Number: US-BRISTOL-MYERS SQUIBB COMPANY-12405718

PATIENT
  Age: 46 Year
  Sex: Male
  Weight: 68 kg

DRUGS (7)
  1. VIDEX EC [Suspect]
     Indication: HIV INFECTION
     Dosage: 8 TO 10 YEARS
     Route: 048
  2. CLARITIN [Concomitant]
  3. EPIVIR [Concomitant]
  4. KALETRA [Concomitant]
  5. LIPITOR [Concomitant]
  6. VIAGRA [Concomitant]
  7. ZIAGEN [Concomitant]

REACTIONS (2)
  - DRUG RESISTANCE [None]
  - PAIN IN EXTREMITY [None]
